FAERS Safety Report 5230525-0 (Version None)
Quarter: 2007Q1

REPORT INFORMATION
  Report Type: 
  Country: None (occurrence: None)
  Receive Date: 20070206
  Receipt Date: 20070202
  Transmission Date: 20070707
  Serious: Yes (Hospitalization)
  Sender: FDA-Public Use
  Company Number: US-GLAXOSMITHKLINE-A0615877A

PATIENT
  Sex: Male
  Weight: 3 kg

DRUGS (2)
  1. TRIZIVIR [Suspect]
     Indication: HIV INFECTION
     Dosage: 2TAB PER DAY
     Dates: start: 20050813, end: 20060121
  2. ZIDOVUDINE [Suspect]
     Indication: HIV INFECTION
     Dosage: 860MG PER DAY
     Dates: start: 20060120, end: 20060121

REACTIONS (3)
  - DRUG EXPOSURE DURING PREGNANCY [None]
  - HOSPITALISATION [None]
  - MECONIUM IN AMNIOTIC FLUID [None]
